FAERS Safety Report 8745640 (Version 2)
Quarter: 2012Q4

REPORT INFORMATION
  Report Type: 
  Country: US (occurrence: US)
  Receive Date: 20120826
  Receipt Date: 20120917
  Transmission Date: 20130627
  Serious: No
  Sender: FDA-Public Use
  Company Number: US-009507513-1207USA005441

PATIENT

DRUGS (1)
  1. PROVENTIL [Suspect]

REACTIONS (2)
  - Burns third degree [Recovering/Resolving]
  - Device malfunction [Unknown]
